FAERS Safety Report 4793682-6 (Version None)
Quarter: 2005Q4

REPORT INFORMATION
  Report Type: 
  Country: None (occurrence: None)
  Receive Date: 20051011
  Receipt Date: 20051004
  Transmission Date: 20060501
  Serious: Yes (Death, Hospitalization)
  Sender: FDA-Public Use
  Company Number: US-JNJFOC-20050902516

PATIENT
  Age: 12 Year
  Sex: Female

DRUGS (3)
  1. DIPHENHYDRAMINE HCL [Suspect]
     Indication: DRUG USE FOR UNKNOWN INDICATION
     Dosage: 4-5 GRAMS
     Route: 048
  2. ACTIVATED CHARCOAL [Suspect]
     Indication: DRUG USE FOR UNKNOWN INDICATION
     Route: 048
  3. CITALOPRAM [Suspect]
     Indication: DRUG USE FOR UNKNOWN INDICATION
     Route: 048

REACTIONS (7)
  - ASPIRATION [None]
  - BRADYCARDIA [None]
  - CARDIAC ARREST [None]
  - CONVULSION [None]
  - LUNG INJURY [None]
  - MENTAL STATUS CHANGES [None]
  - VOMITING [None]
